FAERS Safety Report 8041059-2 (Version None)
Quarter: 2012Q1

REPORT INFORMATION
  Report Type: 
  Country: None (occurrence: None)
  Receive Date: 20120109
  Receipt Date: 20111228
  Transmission Date: 20120608
  Serious: Yes (Hospitalization, Other)
  Sender: FDA-Public Use
  Company Number: NSR_00334_2011

PATIENT
  Age: 30 Year
  Sex: Female

DRUGS (1)
  1. VENLAFAXINE [Suspect]
     Indication: PRODUCT USED FOR UNKNOWN INDICATION
     Dosage: (DF)

REACTIONS (8)
  - STRESS CARDIOMYOPATHY [None]
  - PULMONARY OEDEMA [None]
  - DYSPNOEA [None]
  - HYPERHIDROSIS [None]
  - SUICIDE ATTEMPT [None]
  - BLOOD PRESSURE INCREASED [None]
  - INTENTIONAL OVERDOSE [None]
  - ELECTROCARDIOGRAM T WAVE INVERSION [None]
